FAERS Safety Report 17139432 (Version 3)
Quarter: 2021Q2

REPORT INFORMATION
  Report Type: Spontaneous
  Country: KZ (occurrence: KZ)
  Receive Date: 20191211
  Receipt Date: 20210526
  Transmission Date: 20210716
  Serious: Yes (Death, Hospitalization, Other)
  Sender: FDA-Public Use
  Company Number: KZ-SA-2019SA333778

PATIENT
  Age: 62 Year
  Sex: Male
  Weight: 76 kg

DRUGS (5)
  1. ATORVASTATIN [Concomitant]
     Active Substance: ATORVASTATIN
     Dosage: 40 MG, QD
     Route: 048
  2. CARDIOMAGNYL [Concomitant]
     Active Substance: ASPIRIN\MAGNESIUM HYDROXIDE
     Dosage: 75 MG, QD(AN EVENING DOSE)
     Route: 048
  3. CONCOR [Concomitant]
     Active Substance: BISOPROLOL FUMARATE
     Dosage: 5 MG, QD (A MORNING DOSE)
     Route: 048
  4. PANTOPRAZOLE [Concomitant]
     Active Substance: PANTOPRAZOLE
     Indication: GASTROINTESTINAL ULCER
     Dosage: UNK UNK, UNK
     Route: 048
     Dates: start: 20191107
  5. PLAVIX [Suspect]
     Active Substance: CLOPIDOGREL BISULFATE
     Indication: STENT PLACEMENT
     Dosage: 75 MG, QD
     Route: 048
     Dates: start: 20190909, end: 20191114

REACTIONS (6)
  - Death [Fatal]
  - Suspected counterfeit product [Unknown]
  - Carotid artery thrombosis [Unknown]
  - Carotid artery occlusion [Unknown]
  - Vascular stent thrombosis [Unknown]
  - Drug ineffective [Unknown]

NARRATIVE: CASE EVENT DATE: 20191112
